FAERS Safety Report 11720042 (Version 1)
Quarter: 2015Q4

REPORT INFORMATION
  Report Type: Spontaneous
  Country: US (occurrence: US)
  Receive Date: 20151110
  Receipt Date: 20151110
  Transmission Date: 20160304
  Serious: Yes (Other)
  Sender: FDA-Public Use
  Company Number: US-UCBSA-2015035374

PATIENT
  Age: 61 Year
  Sex: Female
  Weight: 55 kg

DRUGS (3)
  1. VIMPAT [Suspect]
     Active Substance: LACOSAMIDE
     Indication: TRANSIENT ISCHAEMIC ATTACK
     Dosage: 50 MG, 2X/DAY (BID)
     Dates: start: 201507, end: 2015
  2. VIMPAT [Suspect]
     Active Substance: LACOSAMIDE
     Dosage: 150 MG, 2X/DAY (BID)
     Dates: start: 20151013
  3. VIMPAT [Suspect]
     Active Substance: LACOSAMIDE
     Dosage: 100 MG, 2X/DAY (BID)
     Dates: start: 2015, end: 2015

REACTIONS (9)
  - Aphasia [Not Recovered/Not Resolved]
  - Dysphemia [Not Recovered/Not Resolved]
  - Tremor [Not Recovered/Not Resolved]
  - Nausea [Not Recovered/Not Resolved]
  - Headache [Not Recovered/Not Resolved]
  - Vision blurred [Recovered/Resolved]
  - Seizure [Recovering/Resolving]
  - Dyskinesia [Not Recovered/Not Resolved]
  - Heart rate increased [Not Recovered/Not Resolved]

NARRATIVE: CASE EVENT DATE: 201509
